FAERS Safety Report 10463681 (Version 1)
Quarter: 2014Q3

REPORT INFORMATION
  Report Type: Spontaneous
  Country: US (occurrence: None)
  Receive Date: 20140918
  Receipt Date: 20140918
  Transmission Date: 20150326
  Serious: Yes (Hospitalization)
  Sender: FDA-Public Use
  Company Number: None

PATIENT
  Age: 57 Year

DRUGS (1)
  1. DEXAMETHASONE. [Suspect]
     Active Substance: DEXAMETHASONE
     Indication: EPICONDYLITIS

REACTIONS (6)
  - Headache [None]
  - Malaise [None]
  - Gait disturbance [None]
  - Drug ineffective [None]
  - Feeling abnormal [None]
  - Muscular weakness [None]
